FAERS Safety Report 9011799 (Version 3)
Quarter: 2014Q2

REPORT INFORMATION
  Report Type: Report from Study
  Country: JP (occurrence: JP)
  Receive Date: 20130113
  Receipt Date: 20140402
  Transmission Date: 20141212
  Serious: Yes (Other)
  Sender: FDA-Public Use
  Company Number: PHHY2012JP075455

PATIENT
  Age: 36 Year
  Sex: Male

DRUGS (25)
  1. LEPONEX / CLOZARIL [Suspect]
     Indication: SCHIZOPHRENIA, PARANOID TYPE
     Dosage: 12.5 MG,
     Route: 048
     Dates: start: 20120815, end: 20120816
  2. LEPONEX / CLOZARIL [Suspect]
     Dosage: 25 MG,
     Route: 048
     Dates: start: 20120817, end: 20120819
  3. LEPONEX / CLOZARIL [Suspect]
     Dosage: 50 MG,
     Route: 048
     Dates: start: 20120820, end: 20120822
  4. LEPONEX / CLOZARIL [Suspect]
     Dosage: 75 MG, UNK
     Route: 048
     Dates: start: 20120823, end: 20120824
  5. LEPONEX / CLOZARIL [Suspect]
     Dosage: 100 MG, UNK
     Route: 048
     Dates: start: 20120825, end: 20120826
  6. LEPONEX / CLOZARIL [Suspect]
     Dosage: 125 MG, UNK
     Route: 048
     Dates: start: 20120827, end: 20120828
  7. LEPONEX / CLOZARIL [Suspect]
     Dosage: 12.5 MG, UNK
     Route: 048
     Dates: start: 20120905, end: 20120905
  8. LEPONEX / CLOZARIL [Suspect]
     Dosage: 25 MG, UNK
     Route: 048
     Dates: start: 20120906, end: 20120908
  9. LEPONEX / CLOZARIL [Suspect]
     Dosage: 50 MG, UNK
     Route: 048
     Dates: start: 20120909, end: 20120918
  10. LEPONEX / CLOZARIL [Suspect]
     Dosage: 75 MG, UNK
     Route: 048
     Dates: start: 20120919, end: 20120925
  11. LEPONEX / CLOZARIL [Suspect]
     Dosage: 100 MG, UNK
     Route: 048
     Dates: start: 20120926, end: 20121003
  12. LEPONEX / CLOZARIL [Suspect]
     Dosage: 125 MG, UNK
     Route: 048
     Dates: start: 20121004, end: 20121017
  13. LEPONEX / CLOZARIL [Suspect]
     Dosage: 150 MG, UNK
     Route: 048
     Dates: start: 20121018, end: 20121024
  14. LEPONEX / CLOZARIL [Suspect]
     Dosage: 175 MG, UNK
     Route: 048
     Dates: start: 20121025, end: 20121127
  15. LEPONEX / CLOZARIL [Suspect]
     Dosage: 200 MG,
     Route: 048
     Dates: start: 20121128
  16. DEPAKENE-R [Concomitant]
     Indication: SCHIZOPHRENIA, PARANOID TYPE
     Dosage: 800 MG, UNK
     Route: 048
     Dates: start: 20121115
  17. DEPAKENE-R [Concomitant]
     Dosage: 400 MG, UNK
     Route: 048
  18. WYPAX [Concomitant]
     Indication: SCHIZOPHRENIA, PARANOID TYPE
     Dosage: 0.2 MG, UNK
     Route: 048
     Dates: start: 20121115
  19. WYPAX [Concomitant]
     Dosage: 0.1 MG, UNK
     Route: 048
  20. AMOBAN [Concomitant]
     Indication: SCHIZOPHRENIA, PARANOID TYPE
     Dosage: 10 MG, UNK
     Route: 048
     Dates: start: 20120803
  21. DEPAS [Concomitant]
     Indication: SCHIZOPHRENIA, PARANOID TYPE
     Dosage: 1 MG, UNK
     Route: 048
     Dates: start: 20120830
  22. BENZALIN [Concomitant]
     Indication: SCHIZOPHRENIA, PARANOID TYPE
     Dosage: 10 MG, UNK
     Route: 048
     Dates: start: 20120830
  23. SENNOSIDE [Concomitant]
     Indication: SCHIZOPHRENIA, PARANOID TYPE
     Dosage: 36 MG, UNK
     Route: 048
     Dates: start: 20120830
  24. RISUMIC [Concomitant]
     Indication: SCHIZOPHRENIA, PARANOID TYPE
     Dosage: 20 MG, UNK
     Route: 048
     Dates: start: 20120830
  25. ROHYPNOL [Concomitant]
     Indication: SCHIZOPHRENIA, PARANOID TYPE
     Dosage: 2 MG, UNK
     Route: 048
     Dates: start: 20120906

REACTIONS (13)
  - Shock [Recovered/Resolved]
  - Pneumonia [Recovered/Resolved]
  - Platelet count increased [Recovered/Resolved]
  - Red blood cell count increased [Unknown]
  - Infection [Recovered/Resolved]
  - Haematocrit increased [Unknown]
  - Lymphocyte count decreased [Unknown]
  - Salivary hypersecretion [Unknown]
  - Pyrexia [Recovered/Resolved]
  - Blood pressure systolic increased [Unknown]
  - Eosinophil count increased [Unknown]
  - Monocyte count increased [Unknown]
  - Blood pressure diastolic increased [Unknown]
